FAERS Safety Report 5386049-3 (Version None)
Quarter: 2007Q3

REPORT INFORMATION
  Report Type: 
  Country: None (occurrence: None)
  Receive Date: 20070710
  Receipt Date: 20070628
  Transmission Date: 20080115
  Serious: Yes (Life-Threatening, Hospitalization, Other)
  Sender: FDA-Public Use
  Company Number: 235325K07USA

PATIENT
  Age: 61 Year
  Sex: Male
  Weight: 99.7913 kg

DRUGS (2)
  1. REBIF [Suspect]
     Indication: MULTIPLE SCLEROSIS
     Dosage: 44 MCG, 3 IN 1 WEEKS, SUBCUTANEOUS
     Route: 058
     Dates: start: 20031203
  2. POTASSIUM (POTASSIUM /00031401/) [Concomitant]

REACTIONS (4)
  - CHOLELITHIASIS [None]
  - CORONARY ARTERY OCCLUSION [None]
  - FLATULENCE [None]
  - MYOCARDIAL INFARCTION [None]
